FAERS Safety Report 10179532 (Version 1)
Quarter: 2014Q2

REPORT INFORMATION
  Report Type: Spontaneous
  Country: CH (occurrence: None)
  Receive Date: 20140515
  Receipt Date: 20140515
  Transmission Date: 20141212
  Serious: Yes (Hospitalization)
  Sender: FDA-Public Use
  Company Number: 2014125951

PATIENT
  Age: 72 Year
  Sex: Female
  Weight: 56.6 kg

DRUGS (8)
  1. FRAGMIN [Suspect]
     Indication: DEEP VEIN THROMBOSIS
     Route: 058
     Dates: start: 201402, end: 20140329
  2. XEPILON [Suspect]
     Indication: SCHIZOPHRENIA, PARANOID TYPE
     Route: 030
     Dates: start: 20140308
  3. ELTROXIN (LEVOTHYROXINE SODIUM) [Concomitant]
  4. TARGIN (NALOXONE HYDROCHLORIDE, OXYCODONE HYDROCHLORIDE) [Concomitant]
  5. AKINETON (BIPERIDEN HYDROCHLORIDE) [Concomitant]
  6. PANTOZOL (PANTOPRAZOLE SODIUM) [Concomitant]
  7. GEMZAR (GEMITABINE HYDROCHLORIDE) [Concomitant]
  8. XARELTO (RIVAROXABAN) [Suspect]
     Indication: DEEP VEIN THROMBOSIS
     Dosage: IN THE MORNING
     Route: 048
     Dates: start: 20140330, end: 20140401

REACTIONS (1)
  - Metastatic pulmonary embolism [None]
